FAERS Safety Report 12908590 (Version 2)
Quarter: 2017Q1

REPORT INFORMATION
  Report Type: Spontaneous
  Country: US (occurrence: US)
  Receive Date: 20161103
  Receipt Date: 20170222
  Transmission Date: 20170428
  Serious: No
  Sender: FDA-Public Use
  Company Number: US-APOPHARMA USA, INC.-2016AP013870

PATIENT
  Sex: Male

DRUGS (2)
  1. FERRIPROX [Suspect]
     Active Substance: DEFERIPRONE
     Indication: SUPERFICIAL SIDEROSIS OF CENTRAL NERVOUS SYSTEM
     Dosage: 2000 MG, QD
     Route: 048
     Dates: start: 201604
  2. VICODIN [Concomitant]
     Active Substance: ACETAMINOPHEN\HYDROCODONE BITARTRATE
     Indication: PRODUCT USED FOR UNKNOWN INDICATION
     Route: 065

REACTIONS (2)
  - Somnolence [Recovering/Resolving]
  - Fatigue [Recovering/Resolving]
